FAERS Safety Report 6172593-8 (Version None)
Quarter: 2009Q2

REPORT INFORMATION
  Report Type: 
  Country: None (occurrence: None)
  Receive Date: 20090428
  Receipt Date: 20090421
  Transmission Date: 20091009
  Serious: Yes (Other)
  Sender: FDA-Public Use
  Company Number: 2009SP001002

PATIENT
  Age: 75 Year
  Sex: Male
  Weight: 79.4 kg

DRUGS (3)
  1. LUNESTA [Suspect]
     Indication: INSOMNIA
     Dosage: 1 MG; HS; ORAL
     Route: 048
     Dates: start: 20090401, end: 20090403
  2. ALDACTAZIDE [Concomitant]
  3. SIMVASTATIN [Concomitant]

REACTIONS (2)
  - ABNORMAL SLEEP-RELATED EVENT [None]
  - MIDDLE INSOMNIA [None]
